FAERS Safety Report 7014384-1 (Version None)
Quarter: 2010Q3

REPORT INFORMATION
  Report Type: 
  Country: None (occurrence: None)
  Receive Date: 20100922
  Receipt Date: 20100910
  Transmission Date: 20110219
  Serious: Yes (Hospitalization, Other)
  Sender: FDA-Public Use
  Company Number: 2010AC000278

PATIENT
  Age: 40 Year
  Sex: Male

DRUGS (15)
  1. DIGOXIN [Suspect]
     Dosage: PO
     Route: 048
     Dates: start: 20060301, end: 20080601
  2. DIGOXIN [Suspect]
     Dosage: 0.25 MG; QD; PO
     Route: 048
     Dates: start: 20060101, end: 20090101
  3. ASPIRIN [Concomitant]
  4. COREG [Concomitant]
  5. VASOTEC [Concomitant]
  6. INSPRA [Concomitant]
  7. LASIX [Concomitant]
  8. POTASSIUM [Concomitant]
  9. SEROQUEL [Concomitant]
  10. PREDNISONE [Concomitant]
  11. BACTRIM DS [Concomitant]
  12. K-DUR [Concomitant]
  13. CEFTRIAXONE [Concomitant]
  14. AZITHROMYCIN [Concomitant]
  15. MULTI-VITAMINS [Concomitant]

REACTIONS (20)
  - ANXIETY [None]
  - ASTHENIA [None]
  - CARDIAC DISORDER [None]
  - CARDIAC FAILURE CONGESTIVE [None]
  - CONGESTIVE CARDIOMYOPATHY [None]
  - CORONARY ARTERY DISEASE [None]
  - CORONARY ARTERY OCCLUSION [None]
  - COUGH [None]
  - DIABETIC CARDIOMYOPATHY [None]
  - DILATATION VENTRICULAR [None]
  - ECONOMIC PROBLEM [None]
  - LEFT ATRIAL DILATATION [None]
  - LEFT VENTRICULAR DYSFUNCTION [None]
  - MITRAL VALVE INCOMPETENCE [None]
  - MULTIPLE INJURIES [None]
  - PAIN [None]
  - PULMONARY VALVE INCOMPETENCE [None]
  - SINUS TACHYCARDIA [None]
  - TRICUSPID VALVE INCOMPETENCE [None]
  - VENTRICULAR HYPOKINESIA [None]
